FAERS Safety Report 15737371 (Version 3)
Quarter: 2019Q1

REPORT INFORMATION
  Report Type: Spontaneous
  Country: JP (occurrence: JP)
  Receive Date: 20181218
  Receipt Date: 20190131
  Transmission Date: 20190417
  Serious: Yes (Other)
  Sender: FDA-Public Use
  Company Number: JP-EX USA HOLDINGS-EXHL20180718

PATIENT
  Age: 91 Year
  Sex: Female

DRUGS (2)
  1. LANSOPRAZOLE. [Suspect]
     Active Substance: LANSOPRAZOLE
     Indication: PRODUCT USED FOR UNKNOWN INDICATION
     Dosage: UNKNOWN
     Route: 065
  2. CANDESARTAN CILEXETIL. [Concomitant]
     Active Substance: CANDESARTAN CILEXETIL
     Indication: PRODUCT USED FOR UNKNOWN INDICATION
     Dosage: UNKNOWN
     Route: 065

REACTIONS (9)
  - Pyrexia [Recovered/Resolved]
  - Inflammation [Recovered/Resolved]
  - Achlorhydria [Recovered/Resolved]
  - Abdominal discomfort [Recovered/Resolved]
  - Oedema mucosal [Recovered/Resolved]
  - Abdominal pain upper [Recovered/Resolved]
  - Gastric mucosal hypertrophy [Recovered/Resolved]
  - Gastric mucosa erythema [Recovered/Resolved]
  - Gastritis bacterial [Recovered/Resolved]

NARRATIVE: CASE EVENT DATE: 2016
